FAERS Safety Report 8988304 (Version 1)
Quarter: 2012Q4

REPORT INFORMATION
  Report Type: 
  Country: US (occurrence: US)
  Receive Date: 20121227
  Receipt Date: 20121227
  Transmission Date: 20130627
  Serious: Yes (Hospitalization)
  Sender: FDA-Public Use
  Company Number: US-SANOFI-AVENTIS-2012SA091566

PATIENT

DRUGS (1)
  1. FERRLECIT [Suspect]
     Route: 051

REACTIONS (1)
  - Unresponsive to stimuli [Unknown]
